FAERS Safety Report 7370869-X (Version None)
Quarter: 2011Q1

REPORT INFORMATION
  Report Type: 
  Country: None (occurrence: None)
  Receive Date: 20110324
  Receipt Date: 20110314
  Transmission Date: 20110831
  Serious: No
  Sender: FDA-Public Use
  Company Number: US-BIOGENIDEC-2011BI009822

PATIENT
  Age: 56 Year
  Sex: Female

DRUGS (1)
  1. TYSABRI [Suspect]
     Indication: MULTIPLE SCLEROSIS
     Route: 042
     Dates: start: 20101006

REACTIONS (5)
  - NAUSEA [None]
  - RETINAL HAEMORRHAGE [None]
  - EYELID PTOSIS [None]
  - UVEITIS [None]
  - MUSCLE SPASTICITY [None]
